FAERS Safety Report 20830222 (Version 2)
Quarter: 2022Q4

REPORT INFORMATION
  Report Type: Spontaneous
  Country: GB (occurrence: GB)
  Receive Date: 20220514
  Receipt Date: 20221228
  Transmission Date: 20230113
  Serious: Yes (Hospitalization, Other)
  Sender: FDA-Public Use
  Company Number: GB-ROCHE-3088164

PATIENT
  Age: 83 Year
  Sex: Female

DRUGS (14)
  1. TRASTUZUMAB [Suspect]
     Active Substance: TRASTUZUMAB
     Indication: Breast cancer metastatic
     Dosage: 273 MILLIGRAM, Q3WK
     Route: 040
     Dates: start: 20170329
  2. TRASTUZUMAB [Suspect]
     Active Substance: TRASTUZUMAB
     Dosage: 294 MILLIGRAM, Q3WK
     Route: 040
     Dates: start: 20180105
  3. ADO-TRASTUZUMAB EMTANSINE [Suspect]
     Active Substance: ADO-TRASTUZUMAB EMTANSINE
     Indication: Breast cancer metastatic
     Dosage: 160 MILLIGRAM
     Route: 040
     Dates: start: 20180420
  4. ADO-TRASTUZUMAB EMTANSINE [Suspect]
     Active Substance: ADO-TRASTUZUMAB EMTANSINE
     Dosage: 148 MILLIGRAM
     Route: 040
     Dates: start: 20181029
  5. DOCETAXEL [Suspect]
     Active Substance: DOCETAXEL
     Indication: Breast cancer metastatic
     Dosage: 72 MILLIGRAM
     Route: 040
     Dates: start: 20170330
  6. PACLITAXEL [Suspect]
     Active Substance: PACLITAXEL
     Indication: Breast cancer metastatic
     Dosage: 108 MILLIGRAM
     Route: 040
     Dates: start: 20170512
  7. PERTUZUMAB [Suspect]
     Active Substance: PERTUZUMAB
     Indication: Breast cancer metastatic
     Dosage: 420 MILLIGRAM
     Route: 040
     Dates: start: 20170330
  8. AMBROXOL HYDROCHLORIDE [Concomitant]
     Active Substance: AMBROXOL HYDROCHLORIDE
     Dosage: UNK
     Route: 048
     Dates: end: 20201126
  9. AMOXICILLIN [Concomitant]
     Active Substance: AMOXICILLIN
     Dosage: UNK
     Route: 040
     Dates: start: 20201126
  10. ATENOLOL [Concomitant]
     Active Substance: ATENOLOL
     Dosage: 25 MILLIGRAM
     Route: 048
  11. CO-AMILOZIDE VANNIER [Concomitant]
     Dosage: 2.5 MILLIGRAM
     Route: 048
  12. GENTAMICIN [Concomitant]
     Active Substance: GENTAMICIN
     Dosage: 120 MILLIGRAM
     Route: 040
     Dates: start: 20201126
  13. LEVOTHYROXINE [Concomitant]
     Active Substance: LEVOTHYROXINE
     Dosage: 75 MICROGRAM
     Route: 048
  14. MORPHINE [Concomitant]
     Active Substance: MORPHINE
     Dosage: UNK
     Route: 040
     Dates: start: 20190927

REACTIONS (3)
  - Urinary tract infection [Recovered/Resolved]
  - Hypothermia [Recovered/Resolved]
  - Off label use [Unknown]

NARRATIVE: CASE EVENT DATE: 20201119
